FAERS Safety Report 7985338-3 (Version None)
Quarter: 2011Q4

REPORT INFORMATION
  Report Type: 
  Country: None (occurrence: None)
  Receive Date: 20111216
  Receipt Date: 20110923
  Transmission Date: 20120403
  Serious: No
  Sender: FDA-Public Use
  Company Number: US-ABBOTT-11P-163-0858294-00

PATIENT
  Age: 81 Year

DRUGS (1)
  1. TRILIPIX [Suspect]
     Indication: BLOOD TRIGLYCERIDES ABNORMAL

REACTIONS (3)
  - HEADACHE [None]
  - FEELING ABNORMAL [None]
  - DYSPEPSIA [None]
